FAERS Safety Report 12254522 (Version 2)
Quarter: 2016Q2

REPORT INFORMATION
  Report Type: Report from Study
  Country: US (occurrence: US)
  Receive Date: 20160411
  Receipt Date: 20160512
  Transmission Date: 20160815
  Serious: Yes (Other)
  Sender: FDA-Public Use
  Company Number: US-AMGEN-USASL2016044673

PATIENT
  Age: 67 Year
  Sex: Female

DRUGS (1)
  1. ENBREL [Suspect]
     Active Substance: ETANERCEPT
     Indication: ANKYLOSING SPONDYLITIS
     Dosage: UNK UNK, WEEKLY
     Route: 065
     Dates: start: 201005

REACTIONS (16)
  - Myocardial infarction [Unknown]
  - Injection site pain [Unknown]
  - Neoplasm malignant [Recovered/Resolved]
  - Joint swelling [Unknown]
  - Back pain [Unknown]
  - Glaucoma [Unknown]
  - Iritis [Unknown]
  - Blindness [Unknown]
  - Peripheral swelling [Unknown]
  - Dyspnoea [Unknown]
  - Joint fluid drainage [Recovering/Resolving]
  - Musculoskeletal stiffness [Unknown]
  - Insomnia [Unknown]
  - Gait disturbance [Unknown]
  - Cardiac disorder [Unknown]
  - Joint arthroplasty [Unknown]

NARRATIVE: CASE EVENT DATE: 2012
